FAERS Safety Report 17536276 (Version 1)
Quarter: 2020Q1

REPORT INFORMATION
  Report Type: Spontaneous
  Country: US (occurrence: US)
  Receive Date: 20200313
  Receipt Date: 20200313
  Transmission Date: 20200409
  Serious: No
  Sender: FDA-Public Use
  Company Number: US-GLAXOSMITHKLINE-US2020039205

PATIENT
  Sex: Male

DRUGS (1)
  1. ANORO ELLIPTA [Suspect]
     Active Substance: UMECLIDINIUM BROMIDE\VILANTEROL TRIFENATATE
     Indication: INTERSTITIAL LUNG DISEASE
     Dosage: UNK
     Route: 055

REACTIONS (5)
  - Wrong technique in device usage process [Unknown]
  - Off label use [Unknown]
  - Product use in unapproved indication [Unknown]
  - Productive cough [Unknown]
  - Overdose [Unknown]
